FAERS Safety Report 12083632 (Version 1)
Quarter: 2016Q1

REPORT INFORMATION
  Report Type: Spontaneous
  Country: US (occurrence: None)
  Receive Date: 20160216
  Receipt Date: 20160216
  Transmission Date: 20160526
  Serious: No
  Sender: FDA-Public Use
  Company Number: None

PATIENT
  Age: 56 Year
  Sex: Female

DRUGS (1)
  1. XALKORI [Suspect]
     Active Substance: CRIZOTINIB
     Indication: METASTASES TO LUNG
     Route: 048
     Dates: start: 20131003

REACTIONS (1)
  - Constipation [None]

NARRATIVE: CASE EVENT DATE: 201602
